FAERS Safety Report 5590555-6 (Version None)
Quarter: 2008Q1

REPORT INFORMATION
  Report Type: 
  Country: None (occurrence: None)
  Receive Date: 20080110
  Receipt Date: 20071226
  Transmission Date: 20080703
  Serious: Yes (Hospitalization)
  Sender: FDA-Public Use
  Company Number: 2007-05966

PATIENT
  Age: 56 Year
  Sex: Female
  Weight: 70.7 kg

DRUGS (4)
  1. HYDROXYCHLOROQUINE SULFATE [Suspect]
     Indication: SJOGREN'S SYNDROME
     Dosage: 1 TABLET, BID, ORAL
     Route: 048
     Dates: start: 20071015, end: 20071209
  2. ATENOLOL [Concomitant]
  3. PREMARIN [Concomitant]
  4. ASPIRIN [Concomitant]

REACTIONS (14)
  - ABSCESS OF SALIVARY GLAND [None]
  - CONDITION AGGRAVATED [None]
  - DRUG INEFFECTIVE [None]
  - DRY MOUTH [None]
  - DYSPHAGIA [None]
  - EMOTIONAL DISTRESS [None]
  - FATIGUE [None]
  - FEAR [None]
  - LYMPH NODE PAIN [None]
  - LYMPHADENOPATHY [None]
  - NECK PAIN [None]
  - PHARMACEUTICAL PRODUCT COMPLAINT [None]
  - PHARYNGEAL OEDEMA [None]
  - PHARYNGOLARYNGEAL PAIN [None]
